FAERS Safety Report 4744298-9 (Version None)
Quarter: 2005Q3

REPORT INFORMATION
  Report Type: 
  Country: None (occurrence: None)
  Receive Date: 20050811
  Receipt Date: 20050811
  Transmission Date: 20060218
  Serious: Yes (Life-Threatening, Disabling)
  Sender: FDA-Public Use
  Company Number: None

PATIENT
  Age: 51 Year
  Sex: Female
  Weight: 54.4316 kg

DRUGS (1)
  1. XYREM [Suspect]
     Indication: FIBROMYALGIA

REACTIONS (12)
  - CONFUSIONAL STATE [None]
  - DELUSION [None]
  - DEPRESSION [None]
  - DRUG DEPENDENCE [None]
  - DYSARTHRIA [None]
  - FEELING ABNORMAL [None]
  - HYPERSOMNIA [None]
  - IRRITABILITY [None]
  - LEGAL PROBLEM [None]
  - PARANOIA [None]
  - PSYCHOTIC DISORDER [None]
  - TREMOR [None]
